FAERS Safety Report 5252023-0 (Version None)
Quarter: 2007Q1

REPORT INFORMATION
  Report Type: 
  Country: None (occurrence: None)
  Receive Date: 20070222
  Receipt Date: 20070213
  Transmission Date: 20070707
  Serious: Yes (Other)
  Sender: FDA-Public Use
  Company Number: 231188K07USA

PATIENT
  Age: 60 Year
  Sex: Female

DRUGS (6)
  1. REBIF [Suspect]
     Indication: MULTIPLE SCLEROSIS
     Dosage: SEE IMAGE
     Route: 058
     Dates: start: 20011201, end: 20040101
  2. REBIF [Suspect]
     Indication: MULTIPLE SCLEROSIS
     Dosage: SEE IMAGE
     Route: 058
     Dates: start: 20040101
  3. CENESTIN [Concomitant]
  4. DIOVAN [Concomitant]
  5. ALDACTONE [Concomitant]
  6. PERSANTINE [Concomitant]

REACTIONS (4)
  - ARTHRALGIA [None]
  - BONE MARROW FAILURE [None]
  - PAIN IN EXTREMITY [None]
  - SPINAL HAEMANGIOMA [None]
